FAERS Safety Report 4388050-5 (Version None)
Quarter: 2004Q2

REPORT INFORMATION
  Report Type: 
  Country: None (occurrence: None)
  Receive Date: 20040607
  Receipt Date: 20030414
  Transmission Date: 20050107
  Serious: Yes (Other)
  Sender: FDA-Public Use
  Company Number: 329830

PATIENT
  Age: 2 Week
  Sex: Female
  Weight: 3.1 kg

DRUGS (7)
  1. ACCUTANE [Suspect]
     Dosage: 10 MG DAILY; ORAL
     Route: 048
     Dates: start: 20010929, end: 20020216
  2. NA [Suspect]
     Dosage: NA
  3. INHALER NOS (INHALANT NOS) [Concomitant]
  4. PRENATAL VITAMINS (MINERALS NOS/MULTIVITAMIN NOS) [Concomitant]
  5. AMOXICILLIN [Concomitant]
  6. TYLENOL [Concomitant]
  7. BIRTH CONTROL PILLS (ORAL CONTRACEPTIVE NOS) [Concomitant]

REACTIONS (15)
  - COUGH [None]
  - DACRYOSTENOSIS ACQUIRED [None]
  - EYE DISORDER [None]
  - JAUNDICE [None]
  - JAUNDICE NEONATAL [None]
  - LACRIMATION INCREASED [None]
  - NASAL CONGESTION [None]
  - NASOPHARYNGITIS [None]
  - NORMAL NEWBORN [None]
  - PAIN [None]
  - PREGNANCY [None]
  - PYREXIA [None]
  - RESPIRATORY DISORDER [None]
  - SEBORRHOEA [None]
  - UPPER RESPIRATORY TRACT INFECTION [None]
